FAERS Safety Report 9155311 (Version 1)
Quarter: 2013Q1

REPORT INFORMATION
  Report Type: Spontaneous
  Country: GB (occurrence: GB)
  Receive Date: 20130311
  Receipt Date: 20130311
  Transmission Date: 20140127
  Serious: Yes (Disabling)
  Sender: FDA-Public Use
  Company Number: GB-BRISTOL-MYERS SQUIBB COMPANY-17442229

PATIENT
  Age: 78 Year
  Sex: Male
  Weight: 82 kg

DRUGS (6)
  1. ELIQUIS [Suspect]
     Indication: DEEP VEIN THROMBOSIS
     Route: 048
     Dates: start: 20130206, end: 20130216
  2. PARACETAMOL [Suspect]
     Indication: PAIN
     Route: 048
     Dates: start: 20130206
  3. IBUPROFEN [Suspect]
     Indication: PAIN
     Route: 048
     Dates: start: 20130206
  4. TRAMADOL [Suspect]
     Indication: PAIN
     Route: 048
     Dates: start: 20130206
  5. LANSOPRAZOLE [Suspect]
     Indication: GASTROINTESTINAL DISORDER
     Route: 048
     Dates: start: 20130207
  6. LACTULOSE [Suspect]
     Route: 048

REACTIONS (3)
  - Jaundice [Not Recovered/Not Resolved]
  - Wound haematoma [Not Recovered/Not Resolved]
  - Wound decomposition [Not Recovered/Not Resolved]
